FAERS Safety Report 25949303 (Version 1)
Quarter: 2025Q4

REPORT INFORMATION
  Report Type: Spontaneous
  Country: GB (occurrence: GB)
  Receive Date: 20251022
  Receipt Date: 20251022
  Transmission Date: 20260118
  Serious: Yes (Hospitalization)
  Sender: CHEPLAPHARM
  Company Number: None

PATIENT
  Sex: Male

DRUGS (8)
  1. OLANZAPINE [Suspect]
     Active Substance: OLANZAPINE
     Indication: Schizophrenia
     Dosage: UNK
  2. CLOZARIL [Suspect]
     Active Substance: CLOZAPINE
     Indication: Neutropenia
     Dosage: UNK
     Route: 048
     Dates: start: 20230608
  3. CLOZARIL [Suspect]
     Active Substance: CLOZAPINE
     Indication: Schizophrenia
     Dosage: UNK
     Route: 048
     Dates: start: 20230608
  4. CLOZARIL [Suspect]
     Active Substance: CLOZAPINE
     Indication: Neutropenia
     Dosage: UNK
     Route: 048
     Dates: start: 20241108
  5. CLOZARIL [Suspect]
     Active Substance: CLOZAPINE
     Indication: Schizophrenia
     Dosage: UNK
     Route: 048
     Dates: start: 20241108
  6. CLOZARIL [Suspect]
     Active Substance: CLOZAPINE
     Indication: Neutropenia
     Dosage: UNK
     Route: 048
     Dates: start: 20241111
  7. CLOZARIL [Suspect]
     Active Substance: CLOZAPINE
     Indication: Schizophrenia
     Dosage: UNK
     Route: 048
     Dates: start: 20241111
  8. ZUCLOPENTHIXOL DECANOATE [Suspect]
     Active Substance: ZUCLOPENTHIXOL DECANOATE
     Dosage: UNK

REACTIONS (7)
  - Drug ineffective [Unknown]
  - Loss of personal independence in daily activities [Unknown]
  - Substance use disorder [Unknown]
  - Malaise [Unknown]
  - Neutrophil count decreased [Recovered/Resolved]
  - White blood cell count decreased [Recovered/Resolved]
  - Eosinophil count decreased [Not Recovered/Not Resolved]

NARRATIVE: CASE EVENT DATE: 20240605
